FAERS Safety Report 5013815-6 (Version None)
Quarter: 2006Q2

REPORT INFORMATION
  Report Type: 
  Country: None (occurrence: None)
  Receive Date: 20060530
  Receipt Date: 20060113
  Transmission Date: 20061013
  Serious: Yes (Disabling)
  Sender: FDA-Public Use
  Company Number: US-ROCHE-432508

PATIENT
  Age: 58 Year
  Sex: Female
  Weight: 117.9 kg

DRUGS (2)
  1. ACCUTANE [Suspect]
     Route: 048
     Dates: start: 20040211, end: 20040411
  2. ACCUTANE [Suspect]
     Route: 048
     Dates: start: 20040412

REACTIONS (90)
  - ABDOMINAL DISTENSION [None]
  - ABDOMINAL PAIN [None]
  - ABDOMINAL PAIN LOWER [None]
  - ABDOMINAL PAIN UPPER [None]
  - ABSCESS INTESTINAL [None]
  - ACROCHORDON [None]
  - ALBUMIN GLOBULIN RATIO DECREASED [None]
  - ANAL FISSURE [None]
  - ANAL FISTULA [None]
  - ANAL STENOSIS [None]
  - ANORECTAL DISORDER [None]
  - ARTHRALGIA [None]
  - ARTHRITIS [None]
  - BACK PAIN [None]
  - BLOOD ALBUMIN DECREASED [None]
  - BLOOD PHOSPHORUS INCREASED [None]
  - BLOOD POTASSIUM INCREASED [None]
  - BLOOD TRIGLYCERIDES INCREASED [None]
  - BONE PAIN [None]
  - C-REACTIVE PROTEIN INCREASED [None]
  - CALCINOSIS [None]
  - CARDIAC DISORDER [None]
  - CHROMATURIA [None]
  - CLOSTRIDIUM DIFFICILE TOXIN TEST POSITIVE [None]
  - COLITIS [None]
  - COLONIC POLYP [None]
  - CONJUNCTIVAL ABRASION [None]
  - CONSTIPATION [None]
  - CROHN'S DISEASE [None]
  - CRYING [None]
  - DIARRHOEA [None]
  - DIFFICULTY IN WALKING [None]
  - DIVERTICULUM [None]
  - DIZZINESS [None]
  - DRY EYE [None]
  - DYSPHONIA [None]
  - ERUCTATION [None]
  - EXOSTOSIS [None]
  - EYE IRRITATION [None]
  - FATIGUE [None]
  - FRACTURE [None]
  - FUNGAL INFECTION [None]
  - GASTROOESOPHAGEAL REFLUX DISEASE [None]
  - GENITAL PRURITUS FEMALE [None]
  - HAEMATOCHEZIA [None]
  - HAEMATOCRIT DECREASED [None]
  - HAEMOGLOBIN DECREASED [None]
  - HAEMORRHOIDS [None]
  - HEADACHE [None]
  - HERPES ZOSTER [None]
  - HIDRADENITIS [None]
  - HIGH DENSITY LIPOPROTEIN DECREASED [None]
  - HOT FLUSH [None]
  - IMPAIRED HEALING [None]
  - IMPINGEMENT SYNDROME [None]
  - INCONTINENCE [None]
  - INCREASED UPPER AIRWAY SECRETION [None]
  - INFECTION [None]
  - INFLAMMATORY BOWEL DISEASE [None]
  - INSOMNIA [None]
  - LARGE INTESTINAL ULCER [None]
  - LENTIGO [None]
  - LIP DRY [None]
  - LOW DENSITY LIPOPROTEIN INCREASED [None]
  - NASAL DRYNESS [None]
  - NAUSEA [None]
  - NECK INJURY [None]
  - NIGHT BLINDNESS [None]
  - OBESITY [None]
  - OCCULT BLOOD POSITIVE [None]
  - OEDEMA PERIPHERAL [None]
  - PERIARTHRITIS [None]
  - PHLEBOLITH [None]
  - PROCTALGIA [None]
  - PROCTITIS [None]
  - PROTEUS INFECTION [None]
  - PSEUDOMONAS INFECTION [None]
  - PUS IN STOOL [None]
  - RECTAL HAEMORRHAGE [None]
  - RED BLOOD CELL COUNT DECREASED [None]
  - RED CELL DISTRIBUTION WIDTH INCREASED [None]
  - RENAL DISORDER [None]
  - ROTATOR CUFF SYNDROME [None]
  - SKIN HYPERPIGMENTATION [None]
  - SOMNOLENCE [None]
  - TONGUE DISORDER [None]
  - VAGINAL BURNING SENSATION [None]
  - VAGINITIS BACTERIAL [None]
  - WEIGHT INCREASED [None]
  - XEROSIS [None]
